FAERS Safety Report 4284028-0 (Version None)
Quarter: 2004Q1

REPORT INFORMATION
  Report Type: 
  Country: None (occurrence: None)
  Receive Date: 20040203
  Receipt Date: 20040119
  Transmission Date: 20041129
  Serious: Yes (Hospitalization)
  Sender: FDA-Public Use
  Company Number: PHHO2004DE01078

PATIENT
  Age: 62 Year
  Sex: Male

DRUGS (2)
  1. PKC412 [Suspect]
     Indication: GASTROINTESTINAL STROMAL TUMOUR
     Dosage: 100 MG, BID
     Route: 048
     Dates: start: 20031226
  2. GLEEVEC [Suspect]
     Indication: GASTROINTESTINAL STROMAL TUMOUR
     Dosage: 100 MG, 6QD
     Route: 048
     Dates: start: 20031220

REACTIONS (2)
  - FATIGUE [None]
  - HYPERGLYCAEMIA [None]
